FAERS Safety Report 13702008 (Version 1)
Quarter: 2017Q2

REPORT INFORMATION
  Report Type: Spontaneous
  Country: US (occurrence: US)
  Receive Date: 20170629
  Receipt Date: 20170629
  Transmission Date: 20170830
  Serious: No
  Sender: FDA-Public Use
  Company Number: US-JNJFOC-20160523763

PATIENT
  Sex: Female

DRUGS (3)
  1. NIZORAL A-D [Suspect]
     Active Substance: KETOCONAZOLE
     Indication: SKIN EXFOLIATION
     Dosage: QUARTER SIZE, 1X
     Route: 061
     Dates: start: 20160521, end: 20160521
  2. NIZORAL A-D [Suspect]
     Active Substance: KETOCONAZOLE
     Indication: SKIN EXFOLIATION
     Dosage: QUARTER SIZE, 1X
     Route: 061
     Dates: start: 20160521, end: 20160521
  3. NIZORAL A-D [Suspect]
     Active Substance: KETOCONAZOLE
     Indication: DANDRUFF
     Dosage: QUARTER SIZE, 1X
     Route: 061
     Dates: start: 20160521, end: 20160521

REACTIONS (2)
  - Skin exfoliation [Unknown]
  - Dry skin [Unknown]

NARRATIVE: CASE EVENT DATE: 20160521
